FAERS Safety Report 12487612 (Version 1)
Quarter: 2016Q2

REPORT INFORMATION
  Report Type: Spontaneous
  Country: US (occurrence: None)
  Receive Date: 20160621
  Receipt Date: 20160621
  Transmission Date: 20160815
  Serious: Yes (Hospitalization)
  Sender: FDA-Public Use
  Company Number: None

PATIENT
  Age: 52 Year
  Sex: Male
  Weight: 124.5 kg

DRUGS (1)
  1. SULFAMETHOXAZOLE/TRIMETHOPRIM [Suspect]
     Active Substance: SULFAMETHOXAZOLE\TRIMETHOPRIM
     Indication: ACUTE KIDNEY INJURY
     Dosage: 800/160 MG BID PO
     Route: 048
     Dates: start: 20160413, end: 20160510

REACTIONS (2)
  - Acute kidney injury [None]
  - Syncope [None]

NARRATIVE: CASE EVENT DATE: 20160507
